FAERS Safety Report 13463861 (Version 1)
Quarter: 2017Q2

REPORT INFORMATION
  Report Type: Spontaneous
  Country: US (occurrence: US)
  Receive Date: 20170420
  Receipt Date: 20170420
  Transmission Date: 20170830
  Serious: No
  Sender: FDA-Public Use
  Company Number: US-ROCHE-631355

PATIENT
  Age: 25 Year
  Sex: Female

DRUGS (7)
  1. ACCUTANE [Suspect]
     Active Substance: ISOTRETINOIN
     Dosage: 2 TABLETS FOR ONE MONTH
     Route: 048
  2. SOTRET [Suspect]
     Active Substance: ISOTRETINOIN
     Indication: ACNE
     Dosage: 5-6 BOXES, DAILY, FORM;PILLS
     Route: 048
  3. ACETAMINOPHEN. [Concomitant]
     Active Substance: ACETAMINOPHEN
     Route: 065
  4. PRILOSEC [Concomitant]
     Active Substance: OMEPRAZOLE MAGNESIUM
     Route: 065
  5. TUMS [Concomitant]
     Active Substance: CALCIUM CARBONATE
     Route: 065
  6. ALEVE [Concomitant]
     Active Substance: NAPROXEN SODIUM
     Route: 065
  7. ACCUTANE [Suspect]
     Active Substance: ISOTRETINOIN
     Indication: ACNE
     Dosage: ONE TABLRT FOR THE FIRST MONTH
     Route: 048

REACTIONS (15)
  - Abdominal pain upper [Not Recovered/Not Resolved]
  - Vision blurred [Unknown]
  - Abdominal discomfort [Not Recovered/Not Resolved]
  - Infection parasitic [Not Recovered/Not Resolved]
  - Memory impairment [Unknown]
  - Hair colour changes [Unknown]
  - Headache [Not Recovered/Not Resolved]
  - Dyspepsia [Unknown]
  - Acne [Not Recovered/Not Resolved]
  - Alopecia [Unknown]
  - Premature menopause [Unknown]
  - Visual impairment [Not Recovered/Not Resolved]
  - Hallucination, auditory [Not Recovered/Not Resolved]
  - Obesity [Unknown]
  - Medication residue present [Not Recovered/Not Resolved]

NARRATIVE: CASE EVENT DATE: 1983
